FAERS Safety Report 8354564-6 (Version None)
Quarter: 2012Q2

REPORT INFORMATION
  Report Type: 
  Country: None (occurrence: None)
  Receive Date: 20120511
  Receipt Date: 20120501
  Transmission Date: 20120825
  Serious: Yes (Other)
  Sender: FDA-Public Use
  Company Number: JP-VERTEX PHARMACEUTICALS INC.-AE-2012-006668

PATIENT
  Age: 57 Year
  Sex: Female

DRUGS (9)
  1. REBETOL [Concomitant]
     Route: 048
     Dates: start: 20120308, end: 20120322
  2. PEGINTERFERON ALFA-2A [Concomitant]
     Indication: HEPATITIS C
     Route: 051
     Dates: start: 20120127
  3. TALION [Concomitant]
     Route: 048
     Dates: start: 20120206
  4. TELAVIC (TELAPREVIR) [Suspect]
     Indication: HEPATITIS C
     Route: 048
     Dates: start: 20120127, end: 20120321
  5. TELAVIC (TELAPREVIR) [Suspect]
     Route: 048
     Dates: start: 20120322, end: 20120418
  6. AMLODIPINE [Concomitant]
     Route: 048
  7. REBETOL [Concomitant]
     Route: 048
     Dates: start: 20120329, end: 20120418
  8. REBETOL [Concomitant]
     Indication: HEPATITIS C
     Route: 048
     Dates: start: 20120127, end: 20120308
  9. REBETOL [Concomitant]
     Route: 048
     Dates: start: 20120419

REACTIONS (1)
  - WHITE BLOOD CELL COUNT DECREASED [None]
